FAERS Safety Report 6457711-6 (Version None)
Quarter: 2009Q4

REPORT INFORMATION
  Report Type: 
  Country: None (occurrence: None)
  Receive Date: 20091125
  Receipt Date: 20091124
  Transmission Date: 20100525
  Serious: Yes (Other)
  Sender: FDA-Public Use
  Company Number: RU-BRISTOL-MYERS SQUIBB COMPANY-14863526

PATIENT
  Age: 62 Year
  Sex: Male

DRUGS (1)
  1. ENTECAVIR TABS [Suspect]
     Indication: HEPATITIS B
     Dates: start: 20090601

REACTIONS (2)
  - HYPERTENSION [None]
  - PROTEINURIA [None]
